FAERS Safety Report 9562623 (Version 3)
Quarter: 2013Q4

REPORT INFORMATION
  Report Type: Spontaneous
  Country: JP (occurrence: JP)
  Receive Date: 20130927
  Receipt Date: 20131016
  Transmission Date: 20140711
  Serious: Yes (Other)
  Sender: FDA-Public Use
  Company Number: JP-BAXTER-2013BAX037704

PATIENT
  Age: 61 Year
  Sex: Female

DRUGS (3)
  1. UROMITEXAN 400 MG [Suspect]
     Indication: ENDOMETRIAL CANCER
     Route: 041
     Dates: start: 20130917, end: 20130918
  2. IFOSFAMIDE 40 MG/ML SOLUTION FOR INFUSION [Suspect]
     Indication: ENDOMETRIAL CANCER
     Route: 042
     Dates: start: 20130917, end: 20130918
  3. BRIPLATIN [Suspect]
     Indication: ENDOMETRIAL CANCER
     Route: 041
     Dates: start: 20130917, end: 20130918

REACTIONS (3)
  - Blood pressure increased [Unknown]
  - Chest pain [Recovering/Resolving]
  - Bradycardia [Unknown]
